FAERS Safety Report 23371468 (Version 1)
Quarter: 2024Q1

REPORT INFORMATION
  Report Type: Spontaneous
  Country: US (occurrence: US)
  Receive Date: 20240105
  Receipt Date: 20240105
  Transmission Date: 20240409
  Serious: Yes (Other)
  Sender: FDA-Public Use
  Company Number: US-PFIZER INC-PV202300197582

PATIENT
  Age: 63 Year
  Sex: Female

DRUGS (2)
  1. LORBRENA [Suspect]
     Active Substance: LORLATINIB
     Indication: Lung adenocarcinoma stage IV
     Dosage: 100 MG, DAILY
     Route: 048
     Dates: start: 202303
  2. LORBRENA [Suspect]
     Active Substance: LORLATINIB
     Dosage: (25 MG, 3 TABS, DAILY)
     Route: 048
     Dates: start: 202309

REACTIONS (1)
  - Neuropathy peripheral [Recovering/Resolving]
